FAERS Safety Report 22137129 (Version 2)
Quarter: 2023Q2

REPORT INFORMATION
  Report Type: Report from Study
  Country: CA (occurrence: CA)
  Receive Date: 20230324
  Receipt Date: 20230412
  Transmission Date: 20230722
  Serious: Yes (Death, Other)
  Sender: FDA-Public Use
  Company Number: CA-HLS-202300730

PATIENT
  Age: 62 Year
  Sex: Male

DRUGS (3)
  1. CLOZARIL [Suspect]
     Active Substance: CLOZAPINE
     Indication: Schizoaffective disorder bipolar type
     Route: 048
     Dates: start: 20151021
  2. CLOZARIL [Suspect]
     Active Substance: CLOZAPINE
     Indication: Schizoaffective disorder bipolar type
     Dosage: 100 MG AT 9 AM+ 300 MG QHS
     Route: 048
     Dates: end: 20230316
  3. LAMOTRIGINE [Concomitant]
     Active Substance: LAMOTRIGINE
     Indication: Schizoaffective disorder bipolar type
     Dosage: 100 MG BY MOUTH TWICE DAILY
     Route: 048
     Dates: end: 20230316

REACTIONS (2)
  - Cardiac arrest [Fatal]
  - Off label use [Unknown]

NARRATIVE: CASE EVENT DATE: 20230316
